FAERS Safety Report 13545872 (Version 1)
Quarter: 2017Q2

REPORT INFORMATION
  Report Type: Spontaneous
  Country: CA (occurrence: CA)
  Receive Date: 20170515
  Receipt Date: 20170515
  Transmission Date: 20170830
  Serious: Yes (Other)
  Sender: FDA-Public Use
  Company Number: CA-AMGEN-CANSP2017070782

PATIENT
  Sex: Female

DRUGS (1)
  1. PROLIA [Suspect]
     Active Substance: DENOSUMAB
     Indication: PRODUCT USED FOR UNKNOWN INDICATION
     Dosage: UNK
     Route: 030

REACTIONS (8)
  - Upper limb fracture [Unknown]
  - Ankle fracture [Unknown]
  - Wrist fracture [Unknown]
  - Incorrect route of drug administration [Unknown]
  - Pain in extremity [Unknown]
  - Clavicle fracture [Unknown]
  - Fall [Unknown]
  - Peripheral swelling [Unknown]
